FAERS Safety Report 8592934-1 (Version None)
Quarter: 2012Q3

REPORT INFORMATION
  Report Type: 
  Country: None (occurrence: None)
  Receive Date: 20120814
  Receipt Date: 20120801
  Transmission Date: 20120928
  Serious: No
  Sender: FDA-Public Use
  Company Number: US-ASTRAZENECA-2012SE54567

PATIENT
  Age: 47 Year
  Sex: Male
  Weight: 155.6 kg

DRUGS (2)
  1. SYMBICORT [Suspect]
     Indication: CHRONIC OBSTRUCTIVE PULMONARY DISEASE
     Dosage: 160/4.5 MCG, TWO PUFFS, TWICE DAILY
     Route: 055
  2. CLARITIN [Concomitant]

REACTIONS (7)
  - DIABETES MELLITUS [None]
  - HYPERTENSION [None]
  - COUGH [None]
  - BACK DISORDER [None]
  - WEIGHT DECREASED [None]
  - THYROID DISORDER [None]
  - VISUAL IMPAIRMENT [None]
